FAERS Safety Report 5452261-8 (Version None)
Quarter: 2007Q3

REPORT INFORMATION
  Report Type: 
  Country: None (occurrence: None)
  Receive Date: 20070912
  Receipt Date: 20070912
  Transmission Date: 20080115
  Serious: No
  Sender: FDA-Public Use
  Company Number: None

PATIENT
  Sex: Male
  Weight: 102.0593 kg

DRUGS (1)
  1. AZITHROMYCIN [Suspect]
     Indication: SINUSITIS
     Dosage: 2 TODAY
     Dates: start: 20070911, end: 20070915

REACTIONS (3)
  - DISORIENTATION [None]
  - HYPERHIDROSIS [None]
  - SOMNOLENCE [None]
